FAERS Safety Report 13176192 (Version 2)
Quarter: 2017Q2

REPORT INFORMATION
  Report Type: Report from Study
  Country: US (occurrence: US)
  Receive Date: 20170201
  Receipt Date: 20170529
  Transmission Date: 20170830
  Serious: Yes (Other)
  Sender: FDA-Public Use
  Company Number: US-UCBSA-2017003555

PATIENT
  Age: 47 Year
  Sex: Female

DRUGS (3)
  1. RETIGABINE [Concomitant]
     Active Substance: EZOGABINE
     Indication: EPILEPSY
     Dosage: UNKNOWN DOSE
  2. LAMOTRIGINE. [Suspect]
     Active Substance: LAMOTRIGINE
     Indication: EPILEPSY
     Dosage: 400 MG PER DAY
  3. LEVETIRACETAM. [Suspect]
     Active Substance: LEVETIRACETAM
     Indication: EPILEPSY
     Dosage: UNKNOWN DOSE

REACTIONS (3)
  - Status epilepticus [Unknown]
  - Anticonvulsant drug level increased [Unknown]
  - Toxicity to various agents [Unknown]
